FAERS Safety Report 6612822-7 (Version None)
Quarter: 2010Q1

REPORT INFORMATION
  Report Type: 
  Country: None (occurrence: None)
  Receive Date: 20100303
  Receipt Date: 20090515
  Transmission Date: 20100710
  Serious: No
  Sender: FDA-Public Use
  Company Number: US-ABBOTT-09P-163-0574118-00

PATIENT
  Age: 33 Year
  Sex: Female
  Weight: 54.48 kg

DRUGS (1)
  1. BIAXIN XL [Suspect]
     Indication: INFECTION
     Dosage: DAILY AT BEDTIME
     Route: 048
     Dates: start: 20090509

REACTIONS (3)
  - MOBILITY DECREASED [None]
  - PAIN [None]
  - RASH [None]
